FAERS Safety Report 6784299-2 (Version None)
Quarter: 2010Q2

REPORT INFORMATION
  Report Type: 
  Country: None (occurrence: None)
  Receive Date: 20100622
  Receipt Date: 20100614
  Transmission Date: 20101027
  Serious: Yes (Death)
  Sender: FDA-Public Use
  Company Number: GXKR2010GB06506

PATIENT
  Age: 72 Year
  Sex: Female
  Weight: 109 kg

DRUGS (6)
  1. WARFARIN SODIUM [Suspect]
     Indication: ATRIAL FIBRILLATION
     Route: 048
  2. DALTEPARIN SODIUM [Suspect]
     Indication: ATRIAL FIBRILLATION
     Dosage: 5000 IU, UNK
     Route: 058
     Dates: end: 20100525
  3. AMIODARONE [Concomitant]
     Indication: ATRIAL FIBRILLATION
     Dosage: 200 MG, QD
     Route: 048
  4. CANDESARTAN [Concomitant]
     Indication: HYPERTENSION
     Dosage: 24 MG, QD
     Route: 048
     Dates: end: 20100525
  5. ESOMEPRAZOLE [Concomitant]
     Indication: GASTRIC DISORDER
     Dosage: 20 MG, QD
     Route: 048
  6. FUROSEMIDE [Concomitant]
     Indication: FLUID IMBALANCE
     Dosage: 40 MG, QD
     Route: 048
     Dates: end: 20100525

REACTIONS (6)
  - FALL [None]
  - HEAD INJURY [None]
  - INTRACRANIAL PRESSURE INCREASED [None]
  - MECHANICAL VENTILATION [None]
  - NEUROSURGERY [None]
  - SUBDURAL HAEMORRHAGE [None]
